FAERS Safety Report 18873236 (Version 12)
Quarter: 2021Q3

REPORT INFORMATION
  Report Type: Report from Study
  Country: FR (occurrence: FR)
  Receive Date: 20210210
  Receipt Date: 20210803
  Transmission Date: 20211014
  Serious: Yes (Life-Threatening, Hospitalization)
  Sender: FDA-Public Use
  Company Number: FR-EISAI MEDICAL RESEARCH-EC-2021-087600

PATIENT
  Age: 16 Year
  Sex: Female
  Weight: 61.5 kg

DRUGS (6)
  1. DAKINS FULL [Concomitant]
     Active Substance: SODIUM HYPOCHLORITE
     Dates: start: 20210115, end: 20210128
  2. AMLOR [Concomitant]
     Active Substance: AMLODIPINE BESYLATE
     Dates: start: 20210115, end: 20210131
  3. FLUDROCORTISONE [Concomitant]
     Active Substance: FLUDROCORTISONE
     Dates: start: 20200515
  4. HYDROCORTISONE. [Concomitant]
     Active Substance: HYDROCORTISONE
     Dates: start: 20210115, end: 20210130
  5. LENVATINIB [Suspect]
     Active Substance: LENVATINIB
     Indication: ADRENAL GLAND CANCER
     Route: 048
     Dates: start: 20201204
  6. LEVOTHYROX [Concomitant]
     Active Substance: LEVOTHYROXINE
     Dates: start: 20201231

REACTIONS (2)
  - Hypotension [Recovered/Resolved]
  - Pericardial effusion [Recovered/Resolved]

NARRATIVE: CASE EVENT DATE: 20210129
